FAERS Safety Report 7215218-2 (Version None)
Quarter: 2011Q1

REPORT INFORMATION
  Report Type: 
  Country: None (occurrence: None)
  Receive Date: 20110107
  Receipt Date: 20101118
  Transmission Date: 20110831
  Serious: No
  Sender: FDA-Public Use
  Company Number: A0891158A

PATIENT
  Age: 85 Year
  Sex: Female

DRUGS (1)
  1. LOVAZA [Suspect]
     Dosage: 1G UNKNOWN
     Route: 048
     Dates: end: 20101016

REACTIONS (1)
  - TREATMENT NONCOMPLIANCE [None]
